FAERS Safety Report 9683457 (Version 1)
Quarter: 2013Q4

REPORT INFORMATION
  Report Type: Spontaneous
  Country: US (occurrence: US)
  Receive Date: 20131112
  Receipt Date: 20131112
  Transmission Date: 20140711
  Serious: Yes (Other)
  Sender: FDA-Public Use
  Company Number: US-ELI_LILLY_AND_COMPANY-US201311000121

PATIENT
  Sex: Female

DRUGS (1)
  1. CYMBALTA [Suspect]
     Indication: PAIN
     Dosage: 60 MG, UNKNOWN
     Route: 065

REACTIONS (5)
  - Blood pressure increased [Unknown]
  - Migraine [Unknown]
  - Dysarthria [Unknown]
  - Mental impairment [Unknown]
  - Drug withdrawal syndrome [Unknown]
